FAERS Safety Report 5772028-0 (Version None)
Quarter: 2008Q2

REPORT INFORMATION
  Report Type: 
  Country: None (occurrence: None)
  Receive Date: 20080612
  Receipt Date: 20080612
  Transmission Date: 20081010
  Serious: Yes (Death)
  Sender: FDA-Public Use
  Company Number: None

PATIENT
  Age: 13 Year
  Sex: Male

DRUGS (3)
  1. CONCERTA [Suspect]
     Indication: ATTENTION DEFICIT/HYPERACTIVITY DISORDER
     Dosage: 1 DAILY PO
     Route: 048
     Dates: start: 20020101, end: 20071028
  2. RITALIN [Suspect]
     Indication: ATTENTION DEFICIT/HYPERACTIVITY DISORDER
     Dosage: 1 AS NEEDED PO
     Route: 048
     Dates: start: 20000101, end: 20071028
  3. GROWTH HORMONE [Concomitant]

REACTIONS (3)
  - DRUG TOXICITY [None]
  - NEUROFIBROMATOSIS [None]
  - SUDDEN DEATH [None]
